FAERS Safety Report 12218678 (Version 1)
Quarter: 2016Q1

REPORT INFORMATION
  Report Type: Spontaneous
  Country: US (occurrence: US)
  Receive Date: 20160329
  Receipt Date: 20160329
  Transmission Date: 20160526
  Serious: No
  Sender: FDA-Public Use
  Company Number: US-BAYER-2016-058989

PATIENT
  Age: 57 Year
  Sex: Male
  Weight: 115.19 kg

DRUGS (1)
  1. MIRALAX [Suspect]
     Active Substance: POLYETHYLENE GLYCOL 3350
     Indication: CONSTIPATION
     Dosage: 1 DF, QD
     Route: 048
     Dates: start: 20160319, end: 20160323

REACTIONS (6)
  - Diarrhoea [None]
  - Dizziness [None]
  - Dehydration [None]
  - Lip swelling [None]
  - Abdominal distension [None]
  - Swollen tongue [None]

NARRATIVE: CASE EVENT DATE: 20160319
